FAERS Safety Report 9002996 (Version 1)
Quarter: 2013Q1

REPORT INFORMATION
  Report Type: Spontaneous
  Country: US (occurrence: US)
  Receive Date: 20130108
  Receipt Date: 20130108
  Transmission Date: 20140127
  Serious: Yes (Death)
  Sender: FDA-Public Use
  Company Number: US-ASTRAZENECA-2013SE00936

PATIENT
  Age: 25 Year
  Sex: Female

DRUGS (4)
  1. QUETIAPINE [Suspect]
     Route: 048
  2. DIPHENHYDRAMINE [Suspect]
     Route: 048
  3. ETHANOL [Suspect]
     Route: 048
  4. COCAINE [Suspect]
     Route: 048

REACTIONS (2)
  - Completed suicide [Fatal]
  - Toxicity to various agents [Fatal]
